FAERS Safety Report 8909046 (Version 2)
Quarter: 2013Q1

REPORT INFORMATION
  Report Type: Spontaneous
  Country: US (occurrence: US)
  Receive Date: 20121114
  Receipt Date: 20130125
  Transmission Date: 20140127
  Serious: Yes (Death, Hospitalization, Other)
  Sender: FDA-Public Use
  Company Number: US-PFIZER INC-2012282813

PATIENT
  Age: 52 Year
  Sex: Female

DRUGS (4)
  1. CAMPTOSAR [Suspect]
     Indication: PANCREATIC CARCINOMA
     Dosage: 360 MG, 2 CYCLES (CYCLIC)
     Route: 042
     Dates: start: 20121010, end: 20121024
  2. OXALIPLATIN [Concomitant]
     Indication: PANCREATIC CARCINOMA
     Dosage: 55 MG/M2, CYCLIC (2 CYCLES)
     Dates: start: 20121010, end: 20121024
  3. 5-FU [Concomitant]
     Indication: PANCREATIC CARCINOMA
     Dosage: 400 MG/M2, CYCLIC (2 CYCLES)
     Route: 040
     Dates: start: 20121010, end: 20121024
  4. 5-FU [Concomitant]
     Dosage: 2400 MG/M2 (INFUSION), CYCLIC (2 CYCLES)
     Route: 042
     Dates: start: 20121010, end: 20121024

REACTIONS (9)
  - Multi-organ failure [Fatal]
  - Diabetic ketoacidosis [Unknown]
  - Abdominal pain [Unknown]
  - Hypovolaemia [Unknown]
  - Pancytopenia [Unknown]
  - Renal failure acute [Unknown]
  - Sepsis syndrome [Unknown]
  - Mental impairment [Unknown]
  - Respiratory disorder [Unknown]
